APPROVED DRUG PRODUCT: ATACAND
Active Ingredient: CANDESARTAN CILEXETIL
Strength: 4MG
Dosage Form/Route: TABLET;ORAL
Application: N020838 | Product #001 | TE Code: AB
Applicant: ANI PHARMACEUTICALS INC
Approved: Jun 4, 1998 | RLD: Yes | RS: No | Type: RX